FAERS Safety Report 9549168 (Version 1)
Quarter: 2013Q3

REPORT INFORMATION
  Report Type: Spontaneous
  Country: US (occurrence: US)
  Receive Date: 20130924
  Receipt Date: 20130924
  Transmission Date: 20140515
  Serious: No
  Sender: FDA-Public Use
  Company Number: US-009507513-1207USA004675

PATIENT
  Age: 19 Year
  Sex: Female

DRUGS (2)
  1. CELESTONE [Suspect]
     Indication: PULMONARY MALFORMATION
     Dosage: TWO COURSES DURING THE LATE SECOND AND EARLY THIRD TRIMESTER
  2. CELESTONE [Suspect]
     Indication: HYDROPS FOETALIS

REACTIONS (1)
  - Exposure during pregnancy [Recovered/Resolved]
